FAERS Safety Report 6120720-0 (Version None)
Quarter: 2009Q1

REPORT INFORMATION
  Report Type: 
  Country: None (occurrence: None)
  Receive Date: 20090317
  Receipt Date: 20090304
  Transmission Date: 20090719
  Serious: Yes (Other)
  Sender: FDA-Public Use
  Company Number: BR-ROCHE-619224

PATIENT
  Sex: Male
  Weight: 70 kg

DRUGS (1)
  1. ROACUTAN [Suspect]
     Indication: ACNE
     Dosage: DOSE: 20 MG
     Route: 048
     Dates: start: 20081101, end: 20090223

REACTIONS (6)
  - ABNORMAL BEHAVIOUR [None]
  - ANXIETY [None]
  - CHILLS [None]
  - INSOMNIA [None]
  - TACHYCARDIA [None]
  - VOMITING [None]
